FAERS Safety Report 7358853-3 (Version None)
Quarter: 2011Q1

REPORT INFORMATION
  Report Type: 
  Country: None (occurrence: None)
  Receive Date: 20110317
  Receipt Date: 20110309
  Transmission Date: 20110831
  Serious: Yes (Other)
  Sender: FDA-Public Use
  Company Number: B0704730A

PATIENT
  Age: 77 Year
  Sex: Male
  Weight: 75 kg

DRUGS (6)
  1. SALBUTAMOL [Concomitant]
  2. AMOXICILLIN [Suspect]
     Dates: start: 20101222
  3. CARBOCISTEINE [Concomitant]
  4. PREDNISOLONE [Concomitant]
  5. BUDESONIDE [Concomitant]
  6. TIOTROPIUM BROMIDE [Concomitant]

REACTIONS (2)
  - SKIN IRRITATION [None]
  - ERYTHEMA [None]
